FAERS Safety Report 9691927 (Version 1)
Quarter: 2013Q4

REPORT INFORMATION
  Report Type: Spontaneous
  Country: US (occurrence: US)
  Receive Date: 20131118
  Receipt Date: 20131118
  Transmission Date: 20140711
  Serious: Yes (Hospitalization)
  Sender: FDA-Public Use
  Company Number: US-ROCHE-1305341

PATIENT
  Sex: Female

DRUGS (3)
  1. XOLAIR [Suspect]
     Indication: PRODUCT USED FOR UNKNOWN INDICATION
     Dosage: 125 MG AT 3 SITES
     Route: 058
  2. QVAR [Concomitant]
     Indication: ASTHMA
     Route: 055
  3. GABAPENTIN [Concomitant]
     Route: 065

REACTIONS (1)
  - Asthma [Recovered/Resolved]
